FAERS Safety Report 14379312 (Version 1)
Quarter: 2018Q1

REPORT INFORMATION
  Report Type: Report from Study
  Country: None (occurrence: RO)
  Receive Date: 20180112
  Receipt Date: 20180112
  Transmission Date: 20180509
  Serious: Yes (Death)
  Sender: FDA-Public Use
  Company Number: RO-ABBVIE-18K-135-2220360-00

PATIENT
  Age: 65 Year
  Sex: Male

DRUGS (5)
  1. ASPIRINA CARDIOLOGICA [Concomitant]
     Indication: ISCHAEMIC CARDIOMYOPATHY
     Route: 048
     Dates: start: 20140117, end: 20180110
  2. LEPONEX [Concomitant]
     Active Substance: CLOZAPINE
     Indication: COGNITIVE DISORDER
     Route: 048
     Dates: start: 20140117, end: 20180110
  3. PREDUCTAL [Concomitant]
     Active Substance: TRIMETAZIDINE DIHYDROCHLORIDE
     Indication: ISCHAEMIC CARDIOMYOPATHY
     Route: 048
     Dates: start: 20140117, end: 20180110
  4. TANAKAN [Concomitant]
     Active Substance: GINKGO
     Indication: ARTERIOSCLEROSIS
     Route: 048
     Dates: start: 20140117, end: 20180110
  5. DUODOPA [Suspect]
     Active Substance: CARBIDOPA\LEVODOPA
     Indication: PARKINSON^S DISEASE
     Dosage: DM=8.50??DC=4.50??ED=3.00
     Route: 050
     Dates: start: 20140124, end: 20180110

REACTIONS (1)
  - Cardio-respiratory arrest [Fatal]

NARRATIVE: CASE EVENT DATE: 20180110
